FAERS Safety Report 4501104-5 (Version None)
Quarter: 2004Q4

REPORT INFORMATION
  Report Type: 
  Country: None (occurrence: None)
  Receive Date: 20041110
  Receipt Date: 20041029
  Transmission Date: 20050328
  Serious: Yes (Hospitalization)
  Sender: FDA-Public Use
  Company Number: 2004237775US

PATIENT
  Age: 74 Year
  Sex: Female
  Weight: 78.9 kg

DRUGS (4)
  1. BEXTRA [Suspect]
     Indication: BACK PAIN
     Dosage: 20 MG, QD
     Dates: start: 20040723, end: 20041001
  2. NORVASC [Concomitant]
  3. COZAAR [Concomitant]
  4. TOPROL-XL [Concomitant]

REACTIONS (4)
  - BACK PAIN [None]
  - EXTRASYSTOLES [None]
  - PAIN EXACERBATED [None]
  - SICK SINUS SYNDROME [None]
